FAERS Safety Report 10478741 (Version 1)
Quarter: 2014Q3

REPORT INFORMATION
  Report Type: Spontaneous
  Country: US (occurrence: None)
  Receive Date: 20140924
  Receipt Date: 20140924
  Transmission Date: 20150326
  Serious: Yes (Hospitalization, Other)
  Sender: FDA-Public Use
  Company Number: 2014PAC00038

PATIENT
  Age: 54 Year
  Sex: Male

DRUGS (3)
  1. AMLODIPINE [Suspect]
     Active Substance: AMLODIPINE BESYLATE
  2. VALSARTAN (VALSARTAN) [Suspect]
     Active Substance: VALSARTAN
  3. ATENOLOL (ATENOLOL) UNKNOWN [Suspect]
     Active Substance: ATENOLOL

REACTIONS (6)
  - Lactic acidosis [None]
  - Renal failure [None]
  - Intentional overdose [None]
  - Pulmonary oedema [None]
  - Shock [None]
  - Continuous haemodiafiltration [None]
